FAERS Safety Report 24152270 (Version 2)
Quarter: 2024Q3

REPORT INFORMATION
  Report Type: Spontaneous
  Country: DK (occurrence: DK)
  Receive Date: 20240730
  Receipt Date: 20240809
  Transmission Date: 20241016
  Serious: Yes (Other)
  Sender: TEVA
  Company Number: DK-TEVA-VS-3224205

PATIENT
  Age: 24 Year
  Sex: Female

DRUGS (16)
  1. PREDNISOLONE [Suspect]
     Active Substance: PREDNISOLONE
     Indication: Lichen planus
     Dosage: MODERATE EFFECT BETWEEN 10 AND 25MG; DOSE BELOW 10 MG
     Route: 065
  2. PREDNISOLONE [Suspect]
     Active Substance: PREDNISOLONE
     Indication: Lichen planus
     Route: 065
  3. METHOTREXATE [Suspect]
     Active Substance: METHOTREXATE
     Indication: Lichen planus
     Route: 065
  4. CLOBETASOL PROPIONATE [Suspect]
     Active Substance: CLOBETASOL PROPIONATE
     Indication: Lichen planus
     Route: 061
  5. FLUTICASONE PROPIONATE [Suspect]
     Active Substance: FLUTICASONE PROPIONATE
     Indication: Lichen planus
     Route: 061
  6. TACROLIMUS [Suspect]
     Active Substance: TACROLIMUS
     Indication: Lichen planus
     Route: 061
  7. LAMOTRIGINE [Concomitant]
     Active Substance: LAMOTRIGINE
     Indication: Bipolar disorder
     Route: 065
  8. CYCLOSPORINE [Suspect]
     Active Substance: CYCLOSPORINE
     Indication: Lichen planus
     Route: 065
     Dates: start: 202012
  9. ROFLUMILAST [Suspect]
     Active Substance: ROFLUMILAST
     Indication: Lichen planus
     Route: 048
  10. MYCOPHENOLATE MOFETIL [Suspect]
     Active Substance: MYCOPHENOLATE MOFETIL
     Indication: Lichen planus
     Route: 065
     Dates: start: 202012
  11. AZATHIOPRINE [Suspect]
     Active Substance: AZATHIOPRINE
     Indication: Lichen planus
     Route: 065
     Dates: start: 202012
  12. APREMILAST [Concomitant]
     Active Substance: APREMILAST
     Indication: Lichen planus
     Route: 065
     Dates: start: 202012
  13. ADALIMUMAB [Suspect]
     Active Substance: ADALIMUMAB
     Indication: Lichen planus
     Route: 065
     Dates: start: 202012
  14. ARIPIPRAZOLE [Concomitant]
     Active Substance: ARIPIPRAZOLE
     Indication: Bipolar disorder
     Route: 065
  15. FLUOCINOLONE ACETONIDE [Suspect]
     Active Substance: FLUOCINOLONE ACETONIDE
     Indication: Lichen planus
     Route: 061
  16. QUETIAPINE [Concomitant]
     Active Substance: QUETIAPINE
     Indication: Bipolar disorder
     Route: 065

REACTIONS (7)
  - Lichen planus [Recovered/Resolved]
  - Decreased appetite [Unknown]
  - Cushingoid [Unknown]
  - Nausea [Unknown]
  - Off label use [Unknown]
  - Weight increased [Unknown]
  - Therapy non-responder [Unknown]
